FAERS Safety Report 4403631-8 (Version None)
Quarter: 2004Q3

REPORT INFORMATION
  Report Type: 
  Country: None (occurrence: None)
  Receive Date: 20040715
  Receipt Date: 20040702
  Transmission Date: 20050211
  Serious: Yes (Hospitalization)
  Sender: FDA-Public Use
  Company Number: ENTC2004-0125(0)

PATIENT
  Age: 80 Year
  Sex: Male

DRUGS (6)
  1. STALEVO 100 [Suspect]
     Indication: PARKINSON'S DISEASE
     Dosage: TID, ORAL
     Route: 048
     Dates: start: 20040201
  2. REMINYL [Suspect]
     Indication: DEMENTIA ALZHEIMER'S TYPE
     Dosage: 24 MG
     Dates: start: 20010605
  3. MEMANTINE HCL [Suspect]
     Indication: DEMENTIA
     Dosage: 20 MG, ORAL
     Route: 048
     Dates: start: 20040225
  4. CARBIDOPA AND LEVODOPA [Suspect]
     Indication: PARKINSON'S DISEASE
     Dates: start: 20040201
  5. NORMODYNE [Concomitant]
  6. ACTONEL [Concomitant]

REACTIONS (11)
  - AGITATION [None]
  - ATAXIA [None]
  - CONFUSIONAL STATE [None]
  - DRUG TOXICITY [None]
  - EATING DISORDER [None]
  - EXTRAPYRAMIDAL DISORDER [None]
  - FEELING ABNORMAL [None]
  - HALLUCINATION [None]
  - INCOHERENT [None]
  - MUSCLE RIGIDITY [None]
  - PYREXIA [None]
